FAERS Safety Report 17697366 (Version 1)
Quarter: 2020Q2

REPORT INFORMATION
  Report Type: Spontaneous
  Country: BE (occurrence: BE)
  Receive Date: 20200423
  Receipt Date: 20200423
  Transmission Date: 20200714
  Serious: Yes (Hospitalization)
  Sender: FDA-Public Use
  Company Number: BE-ASTRAZENECA-2019SF79451

PATIENT
  Age: 64 Year
  Sex: Male
  Weight: 99 kg

DRUGS (1)
  1. FASENRA [Suspect]
     Active Substance: BENRALIZUMAB
     Route: 058
     Dates: start: 20190805

REACTIONS (1)
  - Atrial fibrillation [Recovered/Resolved]
